FAERS Safety Report 14665586 (Version 3)
Quarter: 2018Q2

REPORT INFORMATION
  Report Type: Report from Study
  Country: GB (occurrence: GB)
  Receive Date: 20180321
  Receipt Date: 20180614
  Transmission Date: 20180711
  Serious: Yes (Other)
  Sender: FDA-Public Use
  Company Number: GB-JNJFOC-20180321700

PATIENT
  Sex: Female

DRUGS (2)
  1. METHOTREXATE. [Suspect]
     Active Substance: METHOTREXATE
     Indication: PRODUCT USED FOR UNKNOWN INDICATION
     Route: 065
  2. SIMPONI [Suspect]
     Active Substance: GOLIMUMAB
     Indication: PRODUCT USED FOR UNKNOWN INDICATION
     Route: 058

REACTIONS (9)
  - Skin discolouration [Unknown]
  - Eyelid infection [Unknown]
  - Cough [Unknown]
  - Arthritis [Unknown]
  - Fall [Unknown]
  - Fatigue [Unknown]
  - Infection [Unknown]
  - Hot flush [Unknown]
  - Ankle fracture [Unknown]

NARRATIVE: CASE EVENT DATE: 2018
